FAERS Safety Report 4365214-8 (Version None)
Quarter: 2004Q2

REPORT INFORMATION
  Report Type: 
  Country: None (occurrence: None)
  Receive Date: 20040526
  Receipt Date: 20020604
  Transmission Date: 20050107
  Serious: Yes (Hospitalization)
  Sender: FDA-Public Use
  Company Number: PHEH2002PT10799

PATIENT

DRUGS (1)
  1. COMTAN [Suspect]
     Route: 048
     Dates: start: 20020420

REACTIONS (1)
  - HEPATITIS [None]
